FAERS Safety Report 9463622 (Version 2)
Quarter: 2013Q3

REPORT INFORMATION
  Report Type: Spontaneous
  Country: IL (occurrence: IL)
  Receive Date: 20130819
  Receipt Date: 20130823
  Transmission Date: 20140515
  Serious: Yes (Other)
  Sender: FDA-Public Use
  Company Number: PHHY2013IL086140

PATIENT
  Age: 29 Year
  Sex: Female

DRUGS (5)
  1. TOBI PODHALER [Suspect]
     Indication: CYSTIC FIBROSIS
     Dosage: UNK
     Dates: start: 20130403, end: 20130605
  2. TOBI PODHALER [Suspect]
     Dosage: UNK
     Dates: start: 20130626
  3. AZENIL [Concomitant]
     Indication: CYSTIC FIBROSIS
     Dosage: 250 MG
  4. CIPROFLOXACIN [Concomitant]
     Indication: CYSTIC FIBROSIS
     Dosage: 750 MG, BID (750 MG X2)
  5. SYMBICORT [Concomitant]
     Dosage: 4.5 MG X2

REACTIONS (9)
  - Respiratory disorder [Recovering/Resolving]
  - Haemoptysis [Recovering/Resolving]
  - Cough [Recovering/Resolving]
  - White blood cell count increased [Unknown]
  - Blood immunoglobulin G increased [Unknown]
  - Lymphocyte count decreased [Unknown]
  - Neutrophil count increased [Unknown]
  - Thyroxine free decreased [Unknown]
  - Headache [Recovering/Resolving]
